FAERS Safety Report 9467646 (Version 1)
Quarter: 2013Q3

REPORT INFORMATION
  Report Type: Spontaneous
  Country: US (occurrence: None)
  Receive Date: 20130819
  Receipt Date: 20130819
  Transmission Date: 20140515
  Serious: Yes (Disabling, Other)
  Sender: FDA-Public Use
  Company Number: None

PATIENT
  Age: 40 Year
  Sex: Female
  Weight: 61.24 kg

DRUGS (1)
  1. CIPRO 250 MG BAYER [Suspect]
     Indication: URINARY TRACT INFECTION
     Dosage: 1 PILL  TWICE DAILY  TAKEN BY MOUTH
     Route: 048
     Dates: start: 20120225, end: 20120227

REACTIONS (10)
  - Neuropathy peripheral [None]
  - Anxiety [None]
  - Headache [None]
  - Photosensitivity reaction [None]
  - Rash [None]
  - Eating disorder [None]
  - Vomiting [None]
  - Insomnia [None]
  - Arthralgia [None]
  - Tendonitis [None]
